FAERS Safety Report 16919220 (Version 2)
Quarter: 2019Q4

REPORT INFORMATION
  Report Type: Spontaneous
  Country: US (occurrence: US)
  Receive Date: 20191015
  Receipt Date: 20191129
  Transmission Date: 20200122
  Serious: Yes (Disabling, Other)
  Sender: FDA-Public Use
  Company Number: US-ALIMERA SCIENCES LIMITED-US-IL-2019-004484

PATIENT
  Age: 21 Year
  Sex: Female

DRUGS (3)
  1. ILUVIEN [Suspect]
     Active Substance: FLUOCINOLONE ACETONIDE
     Indication: UVEITIS
     Dosage: 0.25 ?G, QD- RIGHT EYE
     Route: 031
     Dates: start: 201907
  2. DUREZOL [Concomitant]
     Active Substance: DIFLUPREDNATE
     Indication: PRODUCT USED FOR UNKNOWN INDICATION
     Dosage: DROP EVERY 1-2 HOURS FOR 2 WEEKS
  3. PREDNISONE. [Concomitant]
     Active Substance: PREDNISONE
     Indication: PRODUCT USED FOR UNKNOWN INDICATION
     Dosage: 60 MG, FOR 1 WEEK

REACTIONS (4)
  - Blindness [Recovered/Resolved]
  - Hypotony of eye [Recovered/Resolved]
  - Off label use [Unknown]
  - Device use issue [Unknown]

NARRATIVE: CASE EVENT DATE: 201907
